FAERS Safety Report 13895705 (Version 7)
Quarter: 2018Q1

REPORT INFORMATION
  Report Type: Spontaneous
  Country: US (occurrence: US)
  Receive Date: 20170823
  Receipt Date: 20180316
  Transmission Date: 20180508
  Serious: Yes (Hospitalization, Other)
  Sender: FDA-Public Use
  Company Number: US-PFIZER INC-2017363680

PATIENT
  Age: 77 Year
  Sex: Female
  Weight: 35.37 kg

DRUGS (2)
  1. IBRANCE [Suspect]
     Active Substance: PALBOCICLIB
     Dosage: 125 MG, CYCLIC (D1-21 Q 28 DAYS)
     Route: 048
     Dates: start: 20170803
  2. IBRANCE [Suspect]
     Active Substance: PALBOCICLIB
     Indication: BREAST CANCER METASTATIC
     Dosage: 125 MG, CYCLIC (DAY 1-21 Q EVERY 28 DAYS)
     Route: 048
     Dates: start: 20170803

REACTIONS (14)
  - Pyrexia [Unknown]
  - Epistaxis [Unknown]
  - Platelet count decreased [Unknown]
  - Weight decreased [Recovering/Resolving]
  - Drug dose omission [Unknown]
  - Decubitus ulcer [Recovering/Resolving]
  - Hypotension [Unknown]
  - Pneumonia [Unknown]
  - Haemoglobin decreased [Unknown]
  - Fall [Unknown]
  - Contusion [Unknown]
  - Nasopharyngitis [Unknown]
  - Emphysema [Unknown]
  - Hunger [Unknown]

NARRATIVE: CASE EVENT DATE: 2017
